FAERS Safety Report 21437464 (Version 2)
Quarter: 2022Q4

REPORT INFORMATION
  Report Type: Spontaneous
  Country: JP (occurrence: JP)
  Receive Date: 20221011
  Receipt Date: 20221019
  Transmission Date: 20230113
  Serious: Yes (Death, Other)
  Sender: FDA-Public Use
  Company Number: JP-KYOWAKIRIN-2022AKK015587

PATIENT

DRUGS (22)
  1. POTELIGEO [Suspect]
     Active Substance: MOGAMULIZUMAB-KPKC
     Indication: Adult T-cell lymphoma/leukaemia
     Dosage: 1 MG/KG, 1X/4 WEEKS
     Route: 041
     Dates: start: 20180306, end: 20180404
  2. POTELIGEO [Suspect]
     Active Substance: MOGAMULIZUMAB-KPKC
     Dosage: 1 MG/KG
     Route: 041
     Dates: start: 20180713, end: 20180713
  3. POTELIGEO [Suspect]
     Active Substance: MOGAMULIZUMAB-KPKC
     Dosage: 1 MG/KG
     Route: 041
     Dates: start: 20170104, end: 20170104
  4. VONOPRAZAN FUMARATE [Concomitant]
     Active Substance: VONOPRAZAN FUMARATE
     Indication: Gastrooesophageal reflux disease
     Dosage: 1 DF, QD, AFTER BREAKFAST?
     Route: 065
     Dates: start: 20180709, end: 20180719
  5. AZOSEMIDE [Concomitant]
     Active Substance: AZOSEMIDE
     Indication: Prophylaxis
     Dosage: 1 DF, QD, AFTER BREAKFAST?
     Route: 065
     Dates: start: 20180709, end: 20180719
  6. FLUCONAZOLE [Concomitant]
     Active Substance: FLUCONAZOLE
     Indication: Prophylaxis
     Dosage: 2 DF, QD, AFTER BREAKFAST?
     Route: 065
     Dates: start: 20180709, end: 20180719
  7. PREDNISOLONE ACETATE [Concomitant]
     Active Substance: PREDNISOLONE ACETATE
     Indication: Rash
     Dosage: 2 DF, QD, AFTER BREAKFAST?
     Route: 065
     Dates: start: 20180709, end: 20180719
  8. LUNESTA [Concomitant]
     Active Substance: ESZOPICLONE
     Indication: Insomnia
     Dosage: 1 DF, QD, BEFORE BEDTIME
     Route: 065
     Dates: start: 20180709, end: 20180719
  9. LIMAPROST [Concomitant]
     Active Substance: LIMAPROST
     Indication: Back pain
     Dosage: 1 DF, TID, AFTER EACH MEAL
     Route: 065
     Dates: start: 20180709, end: 20180719
  10. MIYA-BM [Concomitant]
     Active Substance: CLOSTRIDIUM BUTYRICUM SPORES STRAIN M-55
     Indication: Product used for unknown indication
     Dosage: 2 DF, TID, AFTER EACH MEAL
     Route: 065
     Dates: start: 20180709, end: 20180719
  11. OLOPATADINE HYDROCHLORIDE OD [Concomitant]
     Indication: Rash
     Dosage: 1 DF, BID, AFTER BREAKFAST AND DINNER?
     Route: 065
     Dates: start: 20180709, end: 20180719
  12. LYRICA [Concomitant]
     Active Substance: PREGABALIN
     Indication: Prophylaxis
     Dosage: 1 DF, BID, AFTER BREAKFAST AND BEFORE BEDTIME
     Route: 065
     Dates: start: 20180709, end: 20180719
  13. XYZAL [Concomitant]
     Active Substance: LEVOCETIRIZINE DIHYDROCHLORIDE
     Indication: Prophylaxis
     Dosage: 1 DF, QD, BEFORE BEDTIME
     Route: 065
     Dates: start: 20180709, end: 20180719
  14. ISOTONIC SODIUM CHLORIDE SOLUTION [Concomitant]
     Active Substance: SODIUM CHLORIDE
     Indication: Product used for unknown indication
     Dosage: 1 DF, QD
     Route: 042
     Dates: start: 20180713, end: 20180713
  15. ISOTONIC SODIUM CHLORIDE SOLUTION [Concomitant]
     Active Substance: SODIUM CHLORIDE
     Dosage: 1 DF, QD
     Route: 042
     Dates: start: 20180713, end: 20180714
  16. ISOTONIC SODIUM CHLORIDE SOLUTION [Concomitant]
     Active Substance: SODIUM CHLORIDE
     Dosage: 1 DF, QD
     Route: 042
     Dates: start: 20180713, end: 20180713
  17. ISOTONIC SODIUM CHLORIDE SOLUTION [Concomitant]
     Active Substance: SODIUM CHLORIDE
     Dosage: 1 DF, QD
     Route: 042
     Dates: start: 20180713, end: 20180713
  18. ISOTONIC SODIUM CHLORIDE SOLUTION [Concomitant]
     Active Substance: SODIUM CHLORIDE
     Dosage: 0.800 DF, QD
     Route: 042
     Dates: start: 20180713, end: 20180713
  19. FUROSEMIDE [Concomitant]
     Active Substance: FUROSEMIDE
     Indication: Prophylaxis
     Dosage: 1 DF, QD
     Route: 042
     Dates: start: 20180713, end: 20180714
  20. POLARAMINE [Concomitant]
     Active Substance: DEXCHLORPHENIRAMINE MALEATE
     Indication: Product used for unknown indication
     Dosage: 1 DF, SINGLE
     Route: 042
     Dates: start: 20180713, end: 20180713
  21. DEXAMETHASONE SODIUM PHOSPHATE [Concomitant]
     Active Substance: DEXAMETHASONE SODIUM PHOSPHATE
     Indication: Product used for unknown indication
     Dosage: 1 DF
     Route: 042
     Dates: start: 20180713, end: 20180713
  22. HYDROCORTISONE [Concomitant]
     Active Substance: HYDROCORTISONE
     Indication: Constipation
     Dosage: 1 DF, QD, AFTER DEFECATION
     Route: 065
     Dates: start: 20180709, end: 20180719

REACTIONS (7)
  - Adult T-cell lymphoma/leukaemia [Fatal]
  - Constipation [Fatal]
  - Abdominal pain [Fatal]
  - Pyrexia [Fatal]
  - Vomiting [Fatal]
  - Nausea [Fatal]
  - Erythema [Fatal]

NARRATIVE: CASE EVENT DATE: 20180709
